FAERS Safety Report 18337450 (Version 1)
Quarter: 2020Q4

REPORT INFORMATION
  Report Type: Spontaneous
  Country: DE (occurrence: DE)
  Receive Date: 20201002
  Receipt Date: 20201002
  Transmission Date: 20210113
  Serious: Yes (Other)
  Sender: FDA-Public Use
  Company Number: DE-ASTRAZENECA-2020SF24020

PATIENT
  Sex: Female

DRUGS (2)
  1. LYNPARZA [Suspect]
     Active Substance: OLAPARIB
     Dosage: 600.0MG UNKNOWN
     Route: 048
     Dates: start: 201907
  2. LYNPARZA [Suspect]
     Active Substance: OLAPARIB
     Dosage: 300.0MG UNKNOWN
     Route: 048

REACTIONS (3)
  - Foot fracture [Unknown]
  - Dizziness [Unknown]
  - Syncope [Unknown]
